FAERS Safety Report 6038820-2 (Version None)
Quarter: 2009Q1

REPORT INFORMATION
  Report Type: 
  Country: None (occurrence: None)
  Receive Date: 20090115
  Receipt Date: 20080812
  Transmission Date: 20090719
  Serious: No
  Sender: FDA-Public Use
  Company Number: US-BAYER-200813389BCC

PATIENT
  Age: 73 Year
  Sex: Male
  Weight: 88 kg

DRUGS (5)
  1. ALEVE [Suspect]
     Indication: ARTHRALGIA
     Dosage: TOTAL DAILY DOSE: 440 MG  UNIT DOSE: 220 MG
     Route: 048
  2. ASPIRIN [Concomitant]
     Dosage: AS USED: 81 MG  UNIT DOSE: 81 MG
  3. LISINOPRIL [Concomitant]
     Dosage: AS USED: 10 MG  UNIT DOSE: 10 MG
  4. LEVOTHYROXINE SODIUM [Concomitant]
     Dosage: AS USED: 0.025 MG  UNIT DOSE: 0.025 MG
  5. LIPITOR [Concomitant]
     Dosage: UNIT DOSE: 40 MG

REACTIONS (1)
  - CONTUSION [None]
